FAERS Safety Report 17652645 (Version 1)
Quarter: 2020Q2

REPORT INFORMATION
  Report Type: Report from Study
  Country: CA (occurrence: CA)
  Receive Date: 20200409
  Receipt Date: 20200409
  Transmission Date: 20200713
  Serious: Yes (Death, Hospitalization)
  Sender: FDA-Public Use
  Company Number: CA-MYLANLABS-2020M1023774

PATIENT
  Age: 63 Year
  Sex: Male

DRUGS (17)
  1. FERROUS GLUCONATE [Concomitant]
     Active Substance: FERROUS GLUCONATE
     Dosage: 300/35 DAILY
  2. NITRO                              /00003201/ [Concomitant]
     Active Substance: NITROGLYCERIN
     Dosage: UNK, PRN
  3. LITHIUM. [Concomitant]
     Active Substance: LITHIUM
     Dosage: 600 DAILY
  4. DIVALPROEX [Concomitant]
     Active Substance: DIVALPROEX SODIUM
     Dosage: 635 MILLIGRAM, BID
  5. ASA [Concomitant]
     Active Substance: ASPIRIN
     Dosage: 81 MILLIGRAM, QD
  6. CHOLECALCIFEROL [Concomitant]
     Active Substance: CHOLECALCIFEROL
     Dosage: 1000 INTERNATIONAL UNIT,WEEKLY
  7. CLOZAPINE. [Suspect]
     Active Substance: CLOZAPINE
     Indication: SCHIZOAFFECTIVE DISORDER
     Dosage: UNK
     Dates: start: 201901
  8. LORAZEPAM. [Concomitant]
     Active Substance: LORAZEPAM
     Indication: SEIZURE
     Dosage: 1 MILLIGRAM, PRN
     Route: 030
  9. LACOSAMIDE. [Concomitant]
     Active Substance: LACOSAMIDE
     Dosage: 150 MILLIGRAM, AM
  10. LACOSAMIDE. [Concomitant]
     Active Substance: LACOSAMIDE
     Dosage: 200 MILLIGRAM, QD
  11. CLOZAPINE. [Suspect]
     Active Substance: CLOZAPINE
     Dosage: 225 MILLIGRAM, PM
     Route: 048
     Dates: start: 2019
  12. FLUVOXAMINE [Concomitant]
     Active Substance: FLUVOXAMINE
     Dosage: 50 MILLIGRAM, QD
  13. ATORVASTATIN [Concomitant]
     Active Substance: ATORVASTATIN
     Dosage: 20 DAILY
  14. SENNOSIDE                          /00571901/ [Concomitant]
     Active Substance: SENNOSIDES A AND B
     Dosage: 24 MILLIGRAM, QD
  15. GLYCOZIDE [Concomitant]
     Dosage: 40 BID
  16. METFORMINE                         /00082701/ [Concomitant]
     Active Substance: METFORMIN HYDROCHLORIDE
     Dosage: 1000 MILLIGRAM, BID
  17. PANTOPRAZOLE [Concomitant]
     Active Substance: PANTOPRAZOLE
     Dosage: 40 DAILY

REACTIONS (3)
  - Cardiac arrest [Fatal]
  - Pulmonary embolism [Fatal]
  - Brain death [Fatal]

NARRATIVE: CASE EVENT DATE: 20200209
